FAERS Safety Report 5132582-9 (Version None)
Quarter: 2006Q4

REPORT INFORMATION
  Report Type: 
  Country: None (occurrence: None)
  Receive Date: 20061023
  Receipt Date: 20061016
  Transmission Date: 20070319
  Serious: Yes (Hospitalization, Other)
  Sender: FDA-Public Use
  Company Number: 2006UW20002

PATIENT
  Sex: Female

DRUGS (1)
  1. ZOLADEX [Suspect]
     Indication: BREAST CANCER
     Route: 058

REACTIONS (6)
  - DIZZINESS [None]
  - INCORRECT DOSE ADMINISTERED [None]
  - PHARYNGEAL OEDEMA [None]
  - THROAT TIGHTNESS [None]
  - TINNITUS [None]
  - VERTIGO [None]
